FAERS Safety Report 10155171 (Version 2)
Quarter: 2014Q2

REPORT INFORMATION
  Report Type: Spontaneous
  Country: DE (occurrence: DE)
  Receive Date: 20140506
  Receipt Date: 20140603
  Transmission Date: 20141212
  Serious: Yes (Hospitalization)
  Sender: FDA-Public Use
  Company Number: DE-PFIZER INC-2014122785

PATIENT
  Age: 74 Year
  Sex: Female
  Weight: 60 kg

DRUGS (7)
  1. PANTOZOL [Suspect]
     Indication: PRODUCT USED FOR UNKNOWN INDICATION
     Dosage: 40 MG, UNK
     Route: 065
     Dates: start: 201404
  2. IBUPROFEN [Suspect]
     Dosage: 1800 MG, DAILY (3 DF)
     Route: 065
     Dates: start: 201404
  3. TILIDIN COMP ^ALIUD PHARMA^ [Suspect]
     Dosage: 1 DF, UNK (100/8)
     Route: 065
     Dates: start: 201404
  4. ALCOHOL [Suspect]
     Dosage: 1.5 L, UNK
     Route: 065
     Dates: start: 201404
  5. ZOPICLON [Suspect]
     Dosage: 7.5 MG, UNK
     Route: 065
     Dates: start: 201404
  6. LORMETAZEPAM [Suspect]
     Dosage: 1.2 MG, UNK
     Route: 065
     Dates: start: 201404
  7. ISOPTIN [Suspect]
     Dosage: 1 DF, UNK
     Route: 065
     Dates: start: 201404

REACTIONS (7)
  - Tendon rupture [Unknown]
  - Suicide attempt [Unknown]
  - Toxicity to various agents [Unknown]
  - Alcohol poisoning [Unknown]
  - Hypertension [Unknown]
  - Insomnia [Unknown]
  - Somnolence [Recovering/Resolving]
